FAERS Safety Report 6245898-X (Version None)
Quarter: 2009Q2

REPORT INFORMATION
  Report Type: 
  Country: None (occurrence: None)
  Receive Date: 20090626
  Receipt Date: 20080606
  Transmission Date: 20091009
  Serious: Yes (Hospitalization)
  Sender: FDA-Public Use
  Company Number: A0731958A

PATIENT
  Age: 29 Year
  Sex: Female

DRUGS (5)
  1. IMITREX [Suspect]
     Indication: MIGRAINE
     Route: 048
  2. PREDNISONE [Concomitant]
  3. TOPAMAX [Concomitant]
  4. SKELAXIN [Concomitant]
  5. BIRTH CONTROL PILLS [Concomitant]

REACTIONS (3)
  - DRUG INEFFECTIVE [None]
  - HEADACHE [None]
  - OVERDOSE [None]
